FAERS Safety Report 7270158-8 (Version None)
Quarter: 2011Q1

REPORT INFORMATION
  Report Type: 
  Country: None (occurrence: None)
  Receive Date: 20110202
  Receipt Date: 20110118
  Transmission Date: 20110831
  Serious: Yes (Hospitalization, Disabling)
  Sender: FDA-Public Use
  Company Number: JP-CELGENEUS-087-21880-10122826

PATIENT
  Age: 78 Year
  Sex: Male

DRUGS (4)
  1. DECADRON [Concomitant]
     Indication: MULTIPLE MYELOMA
     Route: 048
     Dates: start: 20101005
  2. DIOVAN [Suspect]
     Route: 048
  3. ZOMETA [Suspect]
     Route: 051
  4. REVLIMID [Suspect]
     Indication: MULTIPLE MYELOMA
     Route: 048
     Dates: start: 20101005

REACTIONS (2)
  - OSTEONECROSIS OF JAW [None]
  - HYPERKALAEMIA [None]
